FAERS Safety Report 18405424 (Version 4)
Quarter: 2023Q2

REPORT INFORMATION
  Report Type: Spontaneous
  Country: US (occurrence: US)
  Receive Date: 20201020
  Receipt Date: 20230512
  Transmission Date: 20230721
  Serious: No
  Sender: FDA-Public Use
  Company Number: US-PFIZER INC-2020403271

PATIENT
  Age: 75 Year
  Sex: Female
  Weight: 49.895 kg

DRUGS (1)
  1. IBRANCE [Suspect]
     Active Substance: PALBOCICLIB
     Indication: Breast cancer female
     Dosage: 1 DAILY FOR 21 DAYS
     Route: 048
     Dates: start: 2018

REACTIONS (4)
  - Fatigue [Unknown]
  - Dry skin [Unknown]
  - Osteoporosis [Unknown]
  - Osteoarthritis [Unknown]
